FAERS Safety Report 8164492 (Version 3)
Quarter: 2012Q4

REPORT INFORMATION
  Report Type: Report from Study
  Country: FR (occurrence: FR)
  Receive Date: 20110930
  Receipt Date: 20121218
  Transmission Date: 20130627
  Serious: Yes (Life-Threatening, Hospitalization)
  Sender: FDA-Public Use
  Company Number: PHHO2011FR11370

PATIENT
  Age: 73 Year
  Sex: Male
  Weight: 63 kg

DRUGS (14)
  1. NEORAL [Suspect]
     Indication: RENAL TRANSPLANT
     Dosage: 175 mg, BID
     Route: 048
     Dates: start: 20110318
  2. CORTANCYL [Suspect]
     Indication: RENAL TRANSPLANT
     Dosage: 60 mg, UNK
     Route: 048
     Dates: start: 20110319
  3. CELLCEPT [Suspect]
     Indication: RENAL TRANSPLANT
     Dosage: 3 g, QD
     Route: 048
     Dates: start: 20110317, end: 20110917
  4. ROVALCYTE [Concomitant]
     Dosage: 450 mg, BID
     Route: 048
  5. BACTRIM [Concomitant]
     Dosage: 400/80 mg
     Route: 048
  6. KARDEGIC [Concomitant]
     Dosage: 6 g, UNK
     Route: 048
  7. CARDENSIEL [Concomitant]
     Dosage: 2.5 mg, UNK
     Route: 048
  8. LYRICA [Concomitant]
     Dosage: 25 mg, UNK
     Route: 048
  9. XATRAL [Concomitant]
  10. IMOVANE [Concomitant]
     Dosage: 3.75 mg, UNK
     Route: 048
  11. ESOMEPRAZOLE [Concomitant]
     Dosage: 20 mg, UNK
     Route: 048
  12. DORZOLAMIDE [Concomitant]
     Dosage: UNK
     Route: 047
  13. SODIUM BICARBONATE [Concomitant]
     Dosage: 6 g, UNK
     Route: 048
  14. CALCIDOSE [Concomitant]
     Dosage: 500 mg, UNK
     Route: 048

REACTIONS (10)
  - Agranulocytosis [Recovering/Resolving]
  - Septic shock [Recovering/Resolving]
  - Pneumonia [Not Recovered/Not Resolved]
  - Cytomegalovirus infection [Unknown]
  - Urinary tract infection [Unknown]
  - Renal failure [Recovering/Resolving]
  - Nephropathy toxic [Unknown]
  - Kidney transplant rejection [Not Recovered/Not Resolved]
  - Nephrolithiasis [Not Recovered/Not Resolved]
  - General physical health deterioration [Recovered/Resolved]
